FAERS Safety Report 6329992-0 (Version None)
Quarter: 2009Q3

REPORT INFORMATION
  Report Type: 
  Country: None (occurrence: None)
  Receive Date: 20090825
  Receipt Date: 20090818
  Transmission Date: 20100115
  Serious: Yes (Other)
  Sender: FDA-Public Use
  Company Number: 2009JP004719

PATIENT
  Age: 72 Year
  Sex: Male

DRUGS (7)
  1. VESICARE [Suspect]
     Indication: NOCTURIA
     Dosage: 5 MG, ORAL
     Route: 048
  2. PAXIL [Suspect]
     Dosage: 20 MG, UID/QD, ORAL
     Route: 048
  3. AMLODIPINE BESYLATE [Concomitant]
  4. TELMISARTAN [Concomitant]
  5. DEPAS (ETIZOLAM) [Concomitant]
  6. MYSLEE (ZOLPIDEM) [Concomitant]
  7. FLUNITRAZEPAM (FLUNTIRAZEPAM) [Concomitant]

REACTIONS (10)
  - ASTHENIA [None]
  - DECREASED ACTIVITY [None]
  - DECREASED APPETITE [None]
  - DELIRIUM [None]
  - DEPRESSED LEVEL OF CONSCIOUSNESS [None]
  - DRUG INTERACTION [None]
  - DRY MOUTH [None]
  - GAIT DISTURBANCE [None]
  - INSOMNIA [None]
  - MAJOR DEPRESSION [None]
